FAERS Safety Report 11428301 (Version 1)
Quarter: 2015Q3

REPORT INFORMATION
  Report Type: Spontaneous
  Country: US (occurrence: US)
  Receive Date: 20150828
  Receipt Date: 20150828
  Transmission Date: 20151125
  Serious: No
  Sender: FDA-Public Use
  Company Number: US-ROCHE-1240762

PATIENT
  Age: 53 Year
  Sex: Female

DRUGS (4)
  1. NOVOLIN N [Concomitant]
     Active Substance: INSULIN HUMAN
     Indication: DIABETES MELLITUS
     Dosage: 45 UNITS IN AM AND 45 UNITS IN PM
     Route: 065
  2. METFORMIN [Concomitant]
     Active Substance: METFORMIN HYDROCHLORIDE
     Route: 065
  3. PEGASYS [Suspect]
     Active Substance: PEGINTERFERON ALFA-2A
     Indication: CHRONIC HEPATITIS C
     Route: 058
     Dates: start: 20130621
  4. RIBAVIRIN. [Suspect]
     Active Substance: RIBAVIRIN
     Indication: CHRONIC HEPATITIS C
     Dosage: ZYDUS PHARMACEUTICALS BRAND, DAILY IN DIVIDED DOSES
     Route: 048
     Dates: start: 20130621

REACTIONS (11)
  - Asthenia [Not Recovered/Not Resolved]
  - Blood glucose increased [Recovering/Resolving]
  - Fall [Unknown]
  - Arthralgia [Unknown]
  - Headache [Unknown]
  - Fatigue [Not Recovered/Not Resolved]
  - Chills [Unknown]
  - Myalgia [Unknown]
  - Nausea [Unknown]
  - Pyrexia [Unknown]
  - Gait disturbance [Unknown]

NARRATIVE: CASE EVENT DATE: 20130625
